FAERS Safety Report 22939698 (Version 2)
Quarter: 2023Q4

REPORT INFORMATION
  Report Type: Spontaneous
  Country: NL (occurrence: NL)
  Receive Date: 20230913
  Receipt Date: 20231102
  Transmission Date: 20240109
  Serious: Yes (Death)
  Sender: FDA-Public Use
  Company Number: None

PATIENT
  Age: 14 Year
  Sex: Female
  Weight: 48 kg

DRUGS (4)
  1. CITALOPRAM [Suspect]
     Active Substance: CITALOPRAM HYDROBROMIDE
     Indication: Depression
     Dosage: 1X PER DAY (1X PER DAG)
     Route: 065
  2. CITALOPRAM [Suspect]
     Active Substance: CITALOPRAM HYDROBROMIDE
     Indication: Depression
     Dosage: 1 X PER DAY (1 X PER DAG), LAST ADMIN DATE: 2022
     Route: 065
     Dates: start: 20220215
  3. CITALOPRAM [Suspect]
     Active Substance: CITALOPRAM HYDROBROMIDE
     Indication: Depression
     Dosage: 1C PER DAY (1C PER DAG)
     Route: 065
     Dates: start: 20220405
  4. MIRTAZAPINE [Concomitant]
     Active Substance: MIRTAZAPINE
     Indication: Product used for unknown indication
     Dosage: TABLET, 15 MG (MILLIGRAM)
     Route: 065

REACTIONS (4)
  - Completed suicide [Fatal]
  - Wrong technique in product usage process [Unknown]
  - Product administered to patient of inappropriate age [Unknown]
  - Suicidal ideation [Fatal]
